FAERS Safety Report 11366421 (Version 1)
Quarter: 2015Q3

REPORT INFORMATION
  Report Type: Spontaneous
  Country: US (occurrence: US)
  Receive Date: 20150811
  Receipt Date: 20150811
  Transmission Date: 20151125
  Serious: No
  Sender: FDA-Public Use
  Company Number: US-ELI_LILLY_AND_COMPANY-US201301003349

PATIENT
  Sex: Male

DRUGS (4)
  1. AXIRON [Suspect]
     Active Substance: TESTOSTERONE
     Indication: BLOOD TESTOSTERONE DECREASED
     Dosage: UNK UNK, UNKNOWN
     Route: 061
     Dates: start: 201210
  2. AXIRON [Suspect]
     Active Substance: TESTOSTERONE
     Dosage: UNK, BID
     Route: 061
     Dates: start: 201211
  3. AXIRON [Suspect]
     Active Substance: TESTOSTERONE
     Dosage: 180 MG (3 SQUIRTS/DAY PER UNDERAM (6 TOTAL SQUIRTS)), QD
     Route: 061
     Dates: start: 201212
  4. TESTOSTERONE. [Concomitant]
     Active Substance: TESTOSTERONE
     Dosage: UNK, 2/M
     Route: 065

REACTIONS (8)
  - Frequent bowel movements [Unknown]
  - Therapy responder [Unknown]
  - Application site reaction [Unknown]
  - Diarrhoea [Recovering/Resolving]
  - Application site erythema [Unknown]
  - Flatulence [Unknown]
  - Application site pain [Unknown]
  - Prescribed overdose [Unknown]

NARRATIVE: CASE EVENT DATE: 201212
